FAERS Safety Report 9518557 (Version 1)
Quarter: 2013Q3

REPORT INFORMATION
  Report Type: Spontaneous
  Country: US (occurrence: None)
  Receive Date: 20130910
  Receipt Date: 20130910
  Transmission Date: 20140515
  Serious: Yes (Life-Threatening)
  Sender: FDA-Public Use
  Company Number: None

PATIENT
  Age: 64 Year
  Sex: Female
  Weight: 92.99 kg

DRUGS (4)
  1. 18F-FLUORODEOXYGLUCOSE [Suspect]
     Indication: POSITRON EMISSION TOMOGRAM
     Dosage: IV INJECTION FOR PET SCAN
     Route: 042
     Dates: start: 20101004, end: 20101004
  2. CLARINEX [Concomitant]
  3. NIASPAN ER [Concomitant]
  4. DETROL LA [Concomitant]

REACTIONS (1)
  - Glioblastoma multiforme [None]
